FAERS Safety Report 13997877 (Version 1)
Quarter: 2017Q3

REPORT INFORMATION
  Report Type: Spontaneous
  Country: US (occurrence: US)
  Receive Date: 20170921
  Receipt Date: 20170921
  Transmission Date: 20171128
  Serious: Yes (Other)
  Sender: FDA-Public Use
  Company Number: None

PATIENT
  Age: 39 Year
  Sex: Female
  Weight: 72 kg

DRUGS (5)
  1. LAMOTRIGINE/CIPLA [Suspect]
     Active Substance: LAMOTRIGINE
     Indication: BIPOLAR II DISORDER
     Dosage: ?          QUANTITY:1 CAPSULE(S);?
     Route: 048
     Dates: start: 20170905, end: 20170920
  2. ALBUTEROL INHALER [Concomitant]
     Active Substance: ALBUTEROL
  3. DAILY WOMEN^S MULTIVITAMIN [Concomitant]
  4. QVAR INHALER [Concomitant]
  5. VALTREX [Concomitant]
     Active Substance: VALACYCLOVIR HYDROCHLORIDE

REACTIONS (9)
  - Diarrhoea [None]
  - Decreased appetite [None]
  - Headache [None]
  - Mania [None]
  - Tremor [None]
  - Back pain [None]
  - Photophobia [None]
  - Arthralgia [None]
  - Dry mouth [None]

NARRATIVE: CASE EVENT DATE: 20170920
